FAERS Safety Report 22610207 (Version 1)
Quarter: 2023Q2

REPORT INFORMATION
  Report Type: Spontaneous
  Country: FR (occurrence: FR)
  Receive Date: 20230616
  Receipt Date: 20230616
  Transmission Date: 20230721
  Serious: Yes (Death)
  Sender: FDA-Public Use
  Company Number: FR-Atnahs Limited-ATNAHS20230601736

PATIENT
  Age: 61 Year
  Sex: Male
  Weight: 96 kg

DRUGS (9)
  1. VALIUM [Suspect]
     Active Substance: DIAZEPAM
     Indication: Anxiety
     Dosage: 15 GOUTTES MATIN, APRES MIDI ET COUCHER
     Route: 050
     Dates: start: 20230104
  2. TRIMEPRAZINE [Suspect]
     Active Substance: TRIMEPRAZINE
     Indication: Psychotic behaviour
     Dosage: 4 CPR LE SOIR
     Route: 050
     Dates: start: 20221209
  3. RISPERIDONE [Suspect]
     Active Substance: RISPERIDONE
     Indication: Schizoaffective disorder
     Dosage: 2 MG LE MATIN ET 4 MG LE SOIR
     Route: 050
     Dates: start: 20221223
  4. VALPROATE SODIUM [Suspect]
     Active Substance: VALPROATE SODIUM
     Indication: Dyskinesia
     Dosage: 500 MG LE MATIN ET 1000 MG LE SOIR
     Route: 050
     Dates: start: 20220118
  5. MIRTAZAPINE [Suspect]
     Active Substance: MIRTAZAPINE
     Indication: Depression
     Dosage: 1 CPR LE SOIR
     Route: 050
     Dates: start: 20230130
  6. PREGABALIN [Suspect]
     Active Substance: PREGABALIN
     Indication: Depression
     Dosage: 1 LE MATIN ET 1 LE SOIR
     Route: 050
     Dates: start: 20221209
  7. VENLAFAXINE [Suspect]
     Active Substance: VENLAFAXINE HYDROCHLORIDE
     Indication: Depression
     Dosage: 1 GELULE LE MATIN
     Route: 050
     Dates: start: 20230131
  8. TROPATEPINE HYDROCHLORIDE [Suspect]
     Active Substance: TROPATEPINE HYDROCHLORIDE
     Indication: Dyskinesia hyperpyrexia syndrome
     Dosage: 1 CPR LE MATIN + 1 SI BESOIN
     Route: 050
     Dates: start: 20230102
  9. PALIPERIDONE PALMITATE [Suspect]
     Active Substance: PALIPERIDONE PALMITATE
     Indication: Schizophrenia
     Dosage: 1 INJ PAR 28 JOURS, LE 1ER FEVRIER SOIR
     Route: 050
     Dates: start: 20230201

REACTIONS (1)
  - Cardio-respiratory arrest [Fatal]

NARRATIVE: CASE EVENT DATE: 20230202
